FAERS Safety Report 9541993 (Version 2)
Quarter: 2013Q3

REPORT INFORMATION
  Report Type: Spontaneous
  Country: JP (occurrence: JP)
  Receive Date: 20130923
  Receipt Date: 20130923
  Transmission Date: 20140515
  Serious: Yes (Death, Hospitalization)
  Sender: FDA-Public Use
  Company Number: JP-BAYER-2013-070273

PATIENT
  Age: 68 Year
  Sex: Female
  Weight: 44 kg

DRUGS (5)
  1. STIVARGA [Suspect]
     Indication: RECTAL CANCER
     Dosage: 160 MG, QD
     Route: 048
     Dates: start: 20130529, end: 20130611
  2. LOXOPROFEN [Suspect]
     Dosage: 60 MG, TID
     Route: 048
     Dates: start: 20130603, end: 20130612
  3. FAMOTIDINE [Concomitant]
     Dosage: 10 MG, BID
     Route: 048
     Dates: start: 20120801
  4. CODEINE PHOSPHATE [Concomitant]
     Dosage: DAILY DOSE 60 MG
     Route: 048
     Dates: start: 20130603
  5. MAGMITT [Concomitant]
     Dosage: 330 MG, TID
     Route: 048
     Dates: start: 20130603, end: 20130606

REACTIONS (4)
  - Rectal cancer [Fatal]
  - Stevens-Johnson syndrome [Recovered/Resolved]
  - Dysphonia [Not Recovered/Not Resolved]
  - Platelet count decreased [Not Recovered/Not Resolved]
